FAERS Safety Report 10285446 (Version 3)
Quarter: 2014Q3

REPORT INFORMATION
  Report Type: Other
  Country: GB (occurrence: GB)
  Receive Date: 20140709
  Receipt Date: 20140827
  Transmission Date: 20150326
  Serious: Yes (Death, Life-Threatening, Hospitalization)
  Sender: FDA-Public Use
  Company Number: GB-SUN PHARMACEUTICAL INDUSTRIES LTD-2014SUN01473

PATIENT

DRUGS (108)
  1. FENTANYL. [Concomitant]
     Active Substance: FENTANYL
     Dosage: 75 MUG, (1 IN 3 D)
     Route: 061
  2. ITRACONAZOLE. [Concomitant]
     Active Substance: ITRACONAZOLE
     Dosage: 400 MG (200 MG, 2 IN 1 D)
     Route: 048
  3. ITRACONAZOLE. [Concomitant]
     Active Substance: ITRACONAZOLE
     Dosage: 200 MG,BID
     Route: 048
  4. OMEPRAZOLE. [Concomitant]
     Active Substance: OMEPRAZOLE
     Dosage: 20 MG, OD
     Route: 048
  5. OMEPRAZOLE. [Concomitant]
     Active Substance: OMEPRAZOLE
     Dosage: 20 MG,QD
     Route: 048
  6. SIMVASTATIN. [Concomitant]
     Active Substance: SIMVASTATIN
     Dosage: 20 MG, 1 IN 1 D
     Route: 048
  7. VANCOMYCIN [Concomitant]
     Active Substance: VANCOMYCIN
     Dosage: 750 MG, BID
     Route: 042
  8. VANCOMYCIN [Concomitant]
     Active Substance: VANCOMYCIN
     Dosage: 1500 MG (750 MG, 2 IN 1 D)
     Route: 042
  9. CARBAZOCHROME [Concomitant]
     Active Substance: CARBAZOCHROME
     Dosage: UNK UNK,QD
     Route: 048
  10. ATENOLOL. [Concomitant]
     Active Substance: ATENOLOL
     Dosage: 50 MG, 1 IN 1 D
     Route: 048
  11. CYCLOPHOSPHAMIDE. [Suspect]
     Active Substance: CYCLOPHOSPHAMIDE
     Indication: DIFFUSE LARGE B-CELL LYMPHOMA
     Dosage: 1300 MG, UNK
     Route: 042
     Dates: start: 20090826
  12. RITUXIMAB [Suspect]
     Active Substance: RITUXIMAB
     Indication: DIFFUSE LARGE B-CELL LYMPHOMA
     Dosage: 645 UNK, UNK
     Route: 042
     Dates: start: 20090826
  13. ACICLOVIR [Concomitant]
     Active Substance: ACYCLOVIR
     Dosage: 600 MG (200 MG, 3 IN 1 D)
     Route: 048
  14. ADCAL-D3 [Concomitant]
     Active Substance: CALCIUM CARBONATE\CHOLECALCIFEROL
     Dosage: UNK UNK, (1 IN 1 D)
  15. ADCAL-D3 [Concomitant]
     Active Substance: CALCIUM CARBONATE\CHOLECALCIFEROL
     Route: 048
  16. ADCAL-D3 [Concomitant]
     Active Substance: CALCIUM CARBONATE\CHOLECALCIFEROL
     Dosage: 300 MG, QD
     Route: 048
  17. ALLOPURINOL. [Concomitant]
     Active Substance: ALLOPURINOL
     Dosage: 300 MG, OD
     Route: 048
  18. ALLOPURINOL. [Concomitant]
     Active Substance: ALLOPURINOL
     Dosage: 300 MG, 1 IN 1 D
     Route: 048
  19. FENTANYL. [Concomitant]
     Active Substance: FENTANYL
     Dosage: 75 MCG, EVERY THREE DAYS
     Route: 061
  20. FENTANYL. [Concomitant]
     Active Substance: FENTANYL
     Dosage: 75 MUG, (1 IN 3 D)
     Route: 061
  21. FENTANYL. [Concomitant]
     Active Substance: FENTANYL
     Dosage: 75 MUG, (1 IN 3 D)
     Route: 061
  22. FENTANYL. [Concomitant]
     Active Substance: FENTANYL
     Dosage: 75 MCG, 1 IN 3 D
     Route: 061
  23. FRAGMIN [Concomitant]
     Active Substance: DALTEPARIN SODIUM
     Dosage: 6250 ?G,QD
     Route: 058
  24. FUROSEMIDE. [Concomitant]
     Active Substance: FUROSEMIDE
     Dosage: 80 MG (40 MG, 2 IN 1 D)
     Route: 048
  25. SIMVASTATIN. [Concomitant]
     Active Substance: SIMVASTATIN
     Dosage: 20 MG, 1 IN 1 D
     Route: 048
  26. ATENOLOL. [Concomitant]
     Active Substance: ATENOLOL
     Dosage: 50 MG, 1 IN 1 D
     Route: 048
  27. ATENOLOL. [Concomitant]
     Active Substance: ATENOLOL
     Dosage: 50 MG,QD
     Route: 048
  28. ACICLOVIR [Concomitant]
     Active Substance: ACYCLOVIR
     Dosage: 600 MG (200 MG, 3 IN 1 D)
     Route: 048
  29. ACICLOVIR [Concomitant]
     Active Substance: ACYCLOVIR
     Dosage: 600 MG (200 MG, 3 IN 1 D)
     Route: 048
  30. ADCAL-D3 [Concomitant]
     Active Substance: CALCIUM CARBONATE\CHOLECALCIFEROL
     Dosage: UNK UNK, (1 IN 1 D)
  31. ALLOPURINOL. [Concomitant]
     Active Substance: ALLOPURINOL
     Dosage: 300 MG, 1 IN 1 D
     Route: 048
  32. ALLOPURINOL. [Concomitant]
     Active Substance: ALLOPURINOL
     Dosage: 300 MG,QD
     Route: 048
  33. FRAGMIN [Concomitant]
     Active Substance: DALTEPARIN SODIUM
     Dosage: 6250 MCG, 1 IN 1 D
  34. FUROSEMIDE. [Concomitant]
     Active Substance: FUROSEMIDE
     Dosage: 40 MG,BID
     Route: 048
  35. SIMVASTATIN. [Concomitant]
     Active Substance: SIMVASTATIN
     Dosage: 20 MG,QD
     Route: 048
  36. ATENOLOL. [Concomitant]
     Active Substance: ATENOLOL
     Dosage: 50 MG, 1 IN 1 D
     Route: 048
  37. ACICLOVIR [Concomitant]
     Active Substance: ACYCLOVIR
     Dosage: 200 MG,TID
     Route: 048
  38. ADCAL-D3 [Concomitant]
     Active Substance: CALCIUM CARBONATE\CHOLECALCIFEROL
     Route: 048
  39. ADCAL-D3 [Concomitant]
     Active Substance: CALCIUM CARBONATE\CHOLECALCIFEROL
     Dosage: UNK UNK, (1 IN 1 D)
  40. ALLOPURINOL. [Concomitant]
     Active Substance: ALLOPURINOL
     Dosage: 300 MG, 1 IN 1 D
     Route: 048
  41. FRAGMIN [Concomitant]
     Active Substance: DALTEPARIN SODIUM
     Dosage: 6250 MUG, 1 IN 1 D
  42. FRAGMIN [Concomitant]
     Active Substance: DALTEPARIN SODIUM
     Dosage: 6250 ?G,QD
     Route: 058
  43. FUROSEMIDE. [Concomitant]
     Active Substance: FUROSEMIDE
     Dosage: 80 MG (40 MG, 2 IN 1 D)
     Route: 048
  44. FUROSEMIDE. [Concomitant]
     Active Substance: FUROSEMIDE
     Dosage: 80 MG (40 MG, 2 IN 1 D)
     Route: 048
  45. OMEPRAZOLE. [Concomitant]
     Active Substance: OMEPRAZOLE
     Dosage: 20 MG, 1 IN 1 D
     Route: 048
  46. SANDO-K [Concomitant]
     Active Substance: POTASSIUM BICARBONATE\POTASSIUM CHLORIDE
     Route: 048
  47. VANCOMYCIN [Concomitant]
     Active Substance: VANCOMYCIN
     Dosage: 1500 MG (750 MG, 2 IN 1 D)
     Route: 042
  48. VANCOMYCIN [Concomitant]
     Active Substance: VANCOMYCIN
     Dosage: 750 MG,BID
     Route: 042
  49. FLUCONAZOLE. [Concomitant]
     Active Substance: FLUCONAZOLE
     Dosage: 200 MG, BID
  50. ADCAL [Concomitant]
     Dosage: UNK UNK, BID
     Route: 048
  51. ATENOLOL. [Concomitant]
     Active Substance: ATENOLOL
     Indication: ATRIAL FIBRILLATION
     Dosage: 50 MG, 1 IN 1 D
     Route: 048
  52. VINCRISTINE [Suspect]
     Active Substance: VINCRISTINE
     Indication: DIFFUSE LARGE B-CELL LYMPHOMA
     Dosage: 1285 MG ON DAY 1 (FULL DOSE) , 996MG ON DAY 8 (NO FULL DOSE)
     Route: 042
     Dates: start: 20090826
  53. ACICLOVIR [Concomitant]
     Active Substance: ACYCLOVIR
     Dosage: 600 MG (200 MG,3 IN 1 D)
     Route: 048
  54. ADCAL-D3 [Concomitant]
     Active Substance: CALCIUM CARBONATE\CHOLECALCIFEROL
     Dosage: 300 MG, OD
     Route: 048
  55. FENTANYL. [Concomitant]
     Active Substance: FENTANYL
     Dosage: 75 MCG, 1 IN 3 D
     Route: 061
  56. FRAGMIN [Concomitant]
     Active Substance: DALTEPARIN SODIUM
     Route: 058
  57. FRAGMIN [Concomitant]
     Active Substance: DALTEPARIN SODIUM
     Dosage: 6250 MUG, 1 IN 1 D
  58. ITRACONAZOLE. [Concomitant]
     Active Substance: ITRACONAZOLE
     Dosage: 400 MG (200 MG, 2 IN 1 D)
     Route: 048
  59. ITRACONAZOLE. [Concomitant]
     Active Substance: ITRACONAZOLE
     Dosage: 400 MG (200 MG, 2 IN 1 D)
     Route: 048
  60. OMEPRAZOLE. [Concomitant]
     Active Substance: OMEPRAZOLE
     Dosage: 20 MG, 1 IN 1 D
     Route: 048
  61. OMEPRAZOLE. [Concomitant]
     Active Substance: OMEPRAZOLE
     Dosage: 20 MG, 1 IN 1 D
     Route: 048
  62. SANDO-K [Concomitant]
     Active Substance: POTASSIUM BICARBONATE\POTASSIUM CHLORIDE
     Dosage: 20 MG, OD
     Route: 048
  63. SANDO-K [Concomitant]
     Active Substance: POTASSIUM BICARBONATE\POTASSIUM CHLORIDE
     Dosage: 1 IN 1 D
     Route: 048
  64. SIMVASTATIN. [Concomitant]
     Active Substance: SIMVASTATIN
     Dosage: 20 MG, 1 IN 1 D
     Route: 048
  65. GEMCITABINE [Suspect]
     Active Substance: GEMCITABINE\GEMCITABINE HYDROCHLORIDE
     Indication: DIFFUSE LARGE B-CELL LYMPHOMA
     Dosage: 1285 MG ON DAY 1 (FULL DOSE) 969 MG ON DAY 8 (NO FULL DOSE)
     Route: 042
     Dates: start: 20090826
  66. ACICLOVIR [Concomitant]
     Active Substance: ACYCLOVIR
     Dosage: 600 MG (200 MG, 3 IN 1 D)
     Route: 048
  67. ALLOPURINOL. [Concomitant]
     Active Substance: ALLOPURINOL
     Dosage: 300 MG, 1 IN 1 D
     Route: 048
  68. FENTANYL. [Concomitant]
     Active Substance: FENTANYL
     Dosage: 75 ?G,UNK
     Route: 061
  69. FRAGMIN [Concomitant]
     Active Substance: DALTEPARIN SODIUM
     Dosage: 6250 MUG, QD
     Route: 058
  70. FRAGMIN [Concomitant]
     Active Substance: DALTEPARIN SODIUM
     Route: 058
  71. FUROSEMIDE. [Concomitant]
     Active Substance: FUROSEMIDE
     Dosage: 80 MG (40 MG, 2 IN 1 D)
     Route: 048
  72. FUROSEMIDE. [Concomitant]
     Active Substance: FUROSEMIDE
     Dosage: 80 MG (40 MG, 2 IN 1 D)
     Route: 048
  73. ITRACONAZOLE. [Concomitant]
     Active Substance: ITRACONAZOLE
     Dosage: 200 MG, BID
     Route: 048
  74. OMEPRAZOLE. [Concomitant]
     Active Substance: OMEPRAZOLE
     Dosage: 20 MG, 1 IN 1 D
     Route: 048
  75. SANDO-K [Concomitant]
     Active Substance: POTASSIUM BICARBONATE\POTASSIUM CHLORIDE
     Dosage: 1 IN 1 D
  76. SIMVASTATIN. [Concomitant]
     Active Substance: SIMVASTATIN
     Dosage: 20 MG, OD
     Route: 048
  77. SIMVASTATIN. [Concomitant]
     Active Substance: SIMVASTATIN
     Dosage: 20 MG, 1 IN 1 D
     Route: 048
  78. ATENOLOL. [Concomitant]
     Active Substance: ATENOLOL
     Dosage: 50 MG
     Route: 048
     Dates: start: 20090909
  79. ACICLOVIR [Concomitant]
     Active Substance: ACYCLOVIR
     Dosage: 600 MG (200 MG, 3 IN 1 D)
     Route: 048
  80. ADCAL-D3 [Concomitant]
     Active Substance: CALCIUM CARBONATE\CHOLECALCIFEROL
     Dosage: UNK UNK, (1 IN 1 D)
     Route: 048
  81. FENTANYL. [Concomitant]
     Active Substance: FENTANYL
     Dosage: 75 MUG, (1 IN 3 D)
     Route: 061
  82. FRAGMIN [Concomitant]
     Active Substance: DALTEPARIN SODIUM
     Dosage: 6250 MCG, OD
     Route: 058
  83. FRAGMIN [Concomitant]
     Active Substance: DALTEPARIN SODIUM
     Dosage: 6250 MUG, 1 IN 1 D
  84. FUROSEMIDE. [Concomitant]
     Active Substance: FUROSEMIDE
     Dosage: 80 MG (40 MG, 2 IN 1 D)
     Route: 048
  85. FUROSEMIDE. [Concomitant]
     Active Substance: FUROSEMIDE
     Dosage: 20 MG, UNK
     Route: 042
     Dates: start: 20090907, end: 20090907
  86. OMEPRAZOLE. [Concomitant]
     Active Substance: OMEPRAZOLE
     Dosage: 20 MG, 1 IN 1 D
     Route: 048
  87. OMEPRAZOLE. [Concomitant]
     Active Substance: OMEPRAZOLE
     Dosage: 20 MG, 1 IN 1 D
     Route: 048
  88. SANDO-K [Concomitant]
     Active Substance: POTASSIUM BICARBONATE\POTASSIUM CHLORIDE
     Dosage: 1 IN 1 D
  89. SANDO-K [Concomitant]
     Active Substance: POTASSIUM BICARBONATE\POTASSIUM CHLORIDE
     Dosage: UNK
     Route: 048
  90. SIMVASTATIN. [Concomitant]
     Active Substance: SIMVASTATIN
     Dosage: 20 MG, 1 IN 1 D
     Route: 048
  91. VANCOMYCIN [Concomitant]
     Active Substance: VANCOMYCIN
     Dosage: 1500 MG (750 MG, 2 IN 1 D)
     Route: 042
  92. VANCOMYCIN [Concomitant]
     Active Substance: VANCOMYCIN
     Dosage: 1500 MG (750 MG, 2 IN 1 D)
     Route: 042
  93. ATENOLOL. [Concomitant]
     Active Substance: ATENOLOL
     Dosage: 50 MG, 1 IN 1 D
     Route: 048
  94. NEULASTA [Suspect]
     Active Substance: PEGFILGRASTIM
     Indication: DIFFUSE LARGE B-CELL LYMPHOMA
     Dosage: 6 MG, DAY 9
     Route: 058
     Dates: start: 20090903
  95. ACICLOVIR [Concomitant]
     Active Substance: ACYCLOVIR
     Dosage: 600 MG (200 MG, 3 IN 1 D)
     Route: 048
  96. ALLOPURINOL. [Concomitant]
     Active Substance: ALLOPURINOL
     Dosage: 300 MG, 1 IN 1 D
     Route: 048
  97. ALLOPURINOL. [Concomitant]
     Active Substance: ALLOPURINOL
     Dosage: 300 MG, 1 IN 1 D
     Route: 048
  98. FUROSEMIDE. [Concomitant]
     Active Substance: FUROSEMIDE
     Indication: PLEURAL EFFUSION
     Dosage: 40 MG, BID
     Route: 048
  99. ITRACONAZOLE. [Concomitant]
     Active Substance: ITRACONAZOLE
     Dosage: 400 MG (200 MG, 2 IN 1 D)
     Route: 048
  100. ITRACONAZOLE. [Concomitant]
     Active Substance: ITRACONAZOLE
     Dosage: 400 MG (200 MG, 2 IN 1 D)
     Route: 048
  101. ITRACONAZOLE. [Concomitant]
     Active Substance: ITRACONAZOLE
     Dosage: 400 MG (200 MG, 2 IN 1 D)
     Route: 048
  102. SANDO-K [Concomitant]
     Active Substance: POTASSIUM BICARBONATE\POTASSIUM CHLORIDE
     Dosage: 1 IN 1 D
  103. SANDO-K [Concomitant]
     Active Substance: POTASSIUM BICARBONATE\POTASSIUM CHLORIDE
     Route: 048
  104. SIMVASTATIN. [Concomitant]
     Active Substance: SIMVASTATIN
     Dosage: 20 MG, 1 IN 1 D
     Route: 048
  105. VANCOMYCIN [Concomitant]
     Active Substance: VANCOMYCIN
     Dosage: 1500 MG (750 MG, 2 IN 1 D)
     Route: 042
  106. VANCOMYCIN [Concomitant]
     Active Substance: VANCOMYCIN
     Dosage: 1500 MG (750 MG, 2 IN 1 D)
     Route: 042
  107. FLUCONAZOLE. [Concomitant]
     Active Substance: FLUCONAZOLE
     Dosage: 200 MG,BID
  108. ATENOLOL. [Concomitant]
     Active Substance: ATENOLOL
     Dosage: 50 MG, 1 IN 1 D
     Route: 048

REACTIONS (6)
  - Death [Fatal]
  - Oedema [Unknown]
  - Pleural effusion [Not Recovered/Not Resolved]
  - Atrial fibrillation [Not Recovered/Not Resolved]
  - Leukopenia [Not Recovered/Not Resolved]
  - Neutropenia [Not Recovered/Not Resolved]

NARRATIVE: CASE EVENT DATE: 20090901
